FAERS Safety Report 7897041-9 (Version None)
Quarter: 2011Q4

REPORT INFORMATION
  Report Type: 
  Country: None (occurrence: None)
  Receive Date: 20111104
  Receipt Date: 20111104
  Transmission Date: 20120403
  Serious: No
  Sender: FDA-Public Use
  Company Number: None

PATIENT
  Age: 61 Year
  Sex: Female
  Weight: 48.0813 kg

DRUGS (1)
  1. RECLAST [Suspect]
     Indication: OSTEOPOROSIS
     Dates: start: 20110824

REACTIONS (14)
  - CHEST PAIN [None]
  - CHILLS [None]
  - PAIN [None]
  - BONE PAIN [None]
  - NECK PAIN [None]
  - DYSPNOEA [None]
  - PYREXIA [None]
  - TOOTHACHE [None]
  - HEADACHE [None]
  - FEELING ABNORMAL [None]
  - ARTHRALGIA [None]
  - NAUSEA [None]
  - PAIN IN JAW [None]
  - ABDOMINAL PAIN UPPER [None]
